FAERS Safety Report 8082274-1 (Version None)
Quarter: 2012Q1

REPORT INFORMATION
  Report Type: 
  Country: None (occurrence: None)
  Receive Date: 20120127
  Receipt Date: 20110211
  Transmission Date: 20120608
  Serious: No
  Sender: FDA-Public Use
  Company Number: US-ABBOTT-11P-163-0705429-00

PATIENT
  Sex: Male

DRUGS (1)
  1. HUMIRA [Suspect]
     Indication: JOINT EFFUSION
     Route: 058
     Dates: start: 20090911, end: 20101201

REACTIONS (7)
  - INJECTION SITE PAPULE [None]
  - INJECTION SITE PRURITUS [None]
  - INJECTION SITE SWELLING [None]
  - GENERALISED ERYTHEMA [None]
  - INJECTION SITE ERYTHEMA [None]
  - URTICARIA [None]
  - PRURITUS GENERALISED [None]
